FAERS Safety Report 26068554 (Version 2)
Quarter: 2025Q4

REPORT INFORMATION
  Report Type: Spontaneous
  Country: US (occurrence: US)
  Receive Date: 20251120
  Receipt Date: 20251201
  Transmission Date: 20260117
  Serious: Yes (Death, Life-Threatening, Hospitalization, Other)
  Sender: SANOFI AVENTIS
  Company Number: US-DialogSolutions-SAAVPROD-PI843913-C1

PATIENT
  Age: 57 Year
  Sex: Female

DRUGS (6)
  1. LEFLUNOMIDE [Suspect]
     Active Substance: LEFLUNOMIDE
     Indication: Rheumatoid arthritis
     Dosage: UNK
  2. PREDNISONE [Suspect]
     Active Substance: PREDNISONE
     Indication: Rheumatoid arthritis
     Dosage: UNK
  3. UPADACITINIB [Suspect]
     Active Substance: UPADACITINIB
     Indication: Rheumatoid arthritis
     Dosage: UNK
  4. TOCILIZUMAB [Suspect]
     Active Substance: TOCILIZUMAB
     Indication: Haemophagocytic lymphohistiocytosis
     Dosage: UNK
  5. CYCLOPHOSPHAMIDE [Suspect]
     Active Substance: CYCLOPHOSPHAMIDE
     Indication: Lymphoproliferative disorder
     Dosage: UNK
  6. VINCRISTINE [Suspect]
     Active Substance: VINCRISTINE
     Indication: Lymphoproliferative disorder
     Dosage: UNK

REACTIONS (17)
  - Haemophagocytic lymphohistiocytosis [Fatal]
  - Hyponatraemia [Fatal]
  - Hypertransaminasaemia [Fatal]
  - Hyperbilirubinaemia [Fatal]
  - Lymphopenia [Fatal]
  - Splenomegaly [Fatal]
  - Illness [Fatal]
  - Condition aggravated [Fatal]
  - Tumour lysis syndrome [Fatal]
  - Lymphoproliferative disorder [Fatal]
  - Myelosuppression [Fatal]
  - Asthenia [Fatal]
  - Pyrexia [Fatal]
  - Pancytopenia [Fatal]
  - Multiple organ dysfunction syndrome [Fatal]
  - Hypotension [Fatal]
  - Tachycardia [Fatal]
